FAERS Safety Report 10471375 (Version 2)
Quarter: 2014Q3

REPORT INFORMATION
  Report Type: Report from Study
  Country: US (occurrence: US)
  Receive Date: 20140923
  Receipt Date: 20140923
  Transmission Date: 20150326
  Serious: Yes (Death, Life-Threatening, Hospitalization, Other)
  Sender: FDA-Public Use
  Company Number: US-ABBVIE-14P-163-1278095-00

PATIENT
  Age: 66 Year
  Sex: Male
  Weight: 80 kg

DRUGS (13)
  1. NIACIN. [Concomitant]
     Active Substance: NIACIN
     Indication: HYPERLIPIDAEMIA
     Route: 048
     Dates: start: 201308, end: 20140912
  2. GLIPIZIDE. [Concomitant]
     Active Substance: GLIPIZIDE
     Indication: DIABETES MELLITUS
     Route: 048
     Dates: start: 201208, end: 20140912
  3. LOSARTAN [Concomitant]
     Active Substance: LOSARTAN
     Indication: HYPERTENSION
     Route: 048
     Dates: start: 201306, end: 20140912
  4. AMLODIPINE [Concomitant]
     Active Substance: AMLODIPINE BESYLATE
     Indication: HYPERTENSION
     Route: 048
     Dates: start: 201208, end: 20140912
  5. ASPIRIN. [Concomitant]
     Active Substance: ASPIRIN
     Indication: ANTICOAGULANT THERAPY
     Route: 048
     Dates: start: 200912, end: 20140912
  6. FUROSEMIDE. [Concomitant]
     Active Substance: FUROSEMIDE
     Indication: OEDEMA
     Route: 048
     Dates: start: 200912, end: 20140101
  7. FUROSEMIDE. [Concomitant]
     Active Substance: FUROSEMIDE
     Route: 048
     Dates: start: 20140314, end: 20140912
  8. VICTOZA [Concomitant]
     Active Substance: LIRAGLUTIDE
     Indication: DIABETES MELLITUS
     Route: 048
     Dates: start: 201208, end: 20140912
  9. GEMFIBROZIL. [Concomitant]
     Active Substance: GEMFIBROZIL
     Indication: HYPERLIPIDAEMIA
     Route: 048
     Dates: start: 201308, end: 20140912
  10. FUROSEMIDE. [Concomitant]
     Active Substance: FUROSEMIDE
     Indication: OEDEMA
     Route: 048
     Dates: start: 20140102, end: 20140313
  11. ATRASENTAN [Suspect]
     Active Substance: ATRASENTAN
     Indication: DIABETIC NEPHROPATHY
     Route: 048
     Dates: start: 20140211, end: 20140825
  12. MULTIVITAMINS [Concomitant]
     Active Substance: VITAMINS
     Indication: VITAMIN SUPPLEMENTATION
     Route: 048
     Dates: start: 201208, end: 20140912
  13. METFORMIN [Concomitant]
     Active Substance: METFORMIN HYDROCHLORIDE
     Indication: DIABETES MELLITUS
     Route: 048
     Dates: start: 200912, end: 20140912

REACTIONS (2)
  - Arrhythmia [Fatal]
  - Acute myocardial infarction [Recovered/Resolved]

NARRATIVE: CASE EVENT DATE: 20140825
